FAERS Safety Report 15135375 (Version 2)
Quarter: 2018Q3

REPORT INFORMATION
  Report Type: Spontaneous
  Country: US (occurrence: US)
  Receive Date: 20180712
  Receipt Date: 20180723
  Transmission Date: 20181010
  Serious: Yes (Hospitalization)
  Sender: FDA-Public Use
  Company Number: US-LEXICON PHARMACEUTICALS, INC-18-1606-00831

PATIENT
  Age: 66 Year
  Sex: Male
  Weight: 69.9 kg

DRUGS (32)
  1. DIPHEN/ATROP [Concomitant]
     Active Substance: ATROPINE SULFATE\DIPHENOXYLATE
  2. FUROSEMIDE. [Concomitant]
     Active Substance: FUROSEMIDE
     Route: 048
  3. OCTREOTIDE. [Concomitant]
     Active Substance: OCTREOTIDE
     Route: 017
  4. NICODERM CQ [Concomitant]
     Active Substance: NICOTINE
     Route: 062
  5. DIAZEPAM. [Concomitant]
     Active Substance: DIAZEPAM
     Indication: ANXIETY
     Route: 048
  6. PERCOCET [Concomitant]
     Active Substance: ACETAMINOPHEN\OXYCODONE HYDROCHLORIDE
     Route: 048
  7. MAGNESIUM OXIDE. [Concomitant]
     Active Substance: MAGNESIUM OXIDE
     Route: 048
  8. MIRALAX [Concomitant]
     Active Substance: POLYETHYLENE GLYCOL 3350
     Route: 048
  9. SENOKOT [Concomitant]
     Active Substance: SENNOSIDES
     Route: 048
  10. ASPIRIN. [Concomitant]
     Active Substance: ASPIRIN
     Route: 048
  11. CHLORHEXIDINE [Concomitant]
     Active Substance: CHLORHEXIDINE
     Route: 048
  12. CREON [Concomitant]
     Active Substance: PANCRELIPASE AMYLASE\PANCRELIPASE LIPASE\PANCRELIPASE PROTEASE
     Dosage: 24000, 36000, 114000, 180000 UNIT CAPSULE, DELAYED RELEASE
  13. OCTREOTIDE. [Concomitant]
     Active Substance: OCTREOTIDE
     Route: 058
  14. ACETAMINOPHEN. [Concomitant]
     Active Substance: ACETAMINOPHEN
  15. HUMALOG [Concomitant]
     Active Substance: INSULIN LISPRO
     Route: 058
  16. TELOTRISTAT ETHYL [Suspect]
     Active Substance: TELOTRISTAT ETHYL
     Indication: CARCINOID SYNDROME
     Route: 048
     Dates: start: 20171024
  17. OXYCODONE [Concomitant]
     Active Substance: OXYCODONE
     Route: 048
  18. HUMALOG [Concomitant]
     Active Substance: INSULIN LISPRO
     Route: 058
  19. ONDANSETRON [Concomitant]
     Active Substance: ONDANSETRON
     Route: 042
  20. HEPARIN [Concomitant]
     Active Substance: HEPARIN SODIUM
     Route: 058
  21. GLUCAGON. [Concomitant]
     Active Substance: GLUCAGON
     Route: 030
  22. PANTOPRAZOLE [Concomitant]
     Active Substance: PANTOPRAZOLE
     Route: 048
  23. FOLIC ACID. [Concomitant]
     Active Substance: FOLIC ACID
     Route: 048
  24. LISINOPRIL. [Concomitant]
     Active Substance: LISINOPRIL
     Route: 048
  25. GLUTOSE [Concomitant]
     Active Substance: DEXTROSE
     Route: 048
  26. THIAMINE [Concomitant]
     Active Substance: THIAMINE
     Route: 048
  27. SIMETHICONE (DIMETHICONE) [Concomitant]
     Active Substance: DIMETHICONE
     Route: 048
  28. IBUPROFEN. [Concomitant]
     Active Substance: IBUPROFEN
     Route: 048
  29. ATROVENT [Concomitant]
     Active Substance: IPRATROPIUM BROMIDE
  30. OXYCODONE [Concomitant]
     Active Substance: OXYCODONE
     Route: 048
  31. COLACE [Concomitant]
     Active Substance: DOCUSATE SODIUM
     Route: 048
  32. MUPIROCIN. [Concomitant]
     Active Substance: MUPIROCIN

REACTIONS (4)
  - Mass excision [Recovering/Resolving]
  - Procedural pain [Recovering/Resolving]
  - Small intestinal resection [Recovering/Resolving]
  - Cholecystectomy [Recovering/Resolving]

NARRATIVE: CASE EVENT DATE: 201806
